FAERS Safety Report 17256650 (Version 1)
Quarter: 2020Q1

REPORT INFORMATION
  Report Type: Other
  Country: US (occurrence: US)
  Receive Date: 20200110
  Receipt Date: 20200110
  Transmission Date: 20200409
  Serious: Yes (Hospitalization, Other)
  Sender: FDA-Public Use
  Company Number: US-SUNRISE PHARMACEUTICAL, INC.-2078807

PATIENT
  Age: 66 Year
  Sex: Male

DRUGS (2)
  1. NALOXONE HYDROCHLORIDE. [Interacting]
     Active Substance: NALOXONE HYDROCHLORIDE
     Route: 040
  2. OXYCODONE HYDROCHLORIDE. [Suspect]
     Active Substance: OXYCODONE HYDROCHLORIDE
     Indication: WOUND COMPLICATION
     Route: 048

REACTIONS (2)
  - Potentiating drug interaction [Unknown]
  - Unresponsive to stimuli [Unknown]
